FAERS Safety Report 25861250 (Version 1)
Quarter: 2025Q3

REPORT INFORMATION
  Report Type: Spontaneous
  Country: JP (occurrence: JP)
  Receive Date: 20250929
  Receipt Date: 20250929
  Transmission Date: 20251021
  Serious: Yes (Other)
  Sender: EISAI
  Company Number: JP-Eisai-202507732_DVG_P_1

PATIENT
  Age: 37 Year
  Sex: Female

DRUGS (6)
  1. DAYVIGO [Suspect]
     Active Substance: LEMBOREXANT
     Indication: Product used for unknown indication
     Route: 048
  2. QUETIAPINE [Interacting]
     Active Substance: QUETIAPINE
     Indication: Product used for unknown indication
     Route: 048
  3. RISPERDAL [Interacting]
     Active Substance: RISPERIDONE
     Indication: Product used for unknown indication
     Route: 048
  4. DEPAKENE [Concomitant]
     Active Substance: VALPROIC ACID
  5. TEGRETOL [Concomitant]
     Active Substance: CARBAMAZEPINE
  6. LEVOMEPROMAZINE MALEATE [Concomitant]
     Active Substance: LEVOMEPROMAZINE MALEATE

REACTIONS (6)
  - Epilepsy [Unknown]
  - Muscular weakness [Unknown]
  - Drug interaction [Unknown]
  - Nightmare [Unknown]
  - Affect lability [Unknown]
  - Physical deconditioning [Unknown]
